FAERS Safety Report 8734502 (Version 2)
Quarter: 2015Q3

REPORT INFORMATION
  Report Type: Report from Study
  Country: US (occurrence: US)
  Receive Date: 20120821
  Receipt Date: 20150713
  Transmission Date: 20151125
  Serious: Yes (Death, Other)
  Sender: FDA-Public Use
  Company Number: US-ROCHE-1098729

PATIENT
  Age: 50 Year
  Sex: Male

DRUGS (18)
  1. LIDOCAINE. [Concomitant]
     Active Substance: LIDOCAINE
     Route: 040
  2. HEPARIN [Concomitant]
     Active Substance: HEPARIN SODIUM
     Route: 042
  3. ECOTRIN [Concomitant]
     Active Substance: ASPIRIN
     Dosage: 1 TABLET TIMES 1
     Route: 048
  4. PROVENTIL [Concomitant]
     Active Substance: ALBUTEROL
  5. COLACE [Concomitant]
     Active Substance: DOCUSATE SODIUM
     Dosage: 100MGMS
     Route: 065
  6. OXYGEN. [Concomitant]
     Active Substance: OXYGEN
  7. LIDOCAINE. [Concomitant]
     Active Substance: LIDOCAINE
     Route: 040
  8. MORPHINE [Concomitant]
     Active Substance: MORPHINE
     Route: 042
  9. ZANTAC [Concomitant]
     Active Substance: RANITIDINE HYDROCHLORIDE
     Dosage: 50 MGMS, TIMES 1
     Route: 042
  10. ASPIRIN. [Concomitant]
     Active Substance: ASPIRIN
  11. MONOCID [Concomitant]
     Active Substance: CEFONICID SODIUM
     Dosage: 1 TIMES
     Route: 042
  12. DOBUTREX [Concomitant]
     Active Substance: DOBUTAMINE HYDROCHLORIDE
     Dosage: 5 MCG PER KG PER MINUTE
     Route: 042
  13. LASIX [Concomitant]
     Active Substance: FUROSEMIDE
     Dosage: SERIAL DOSE
     Route: 042
  14. GLYCERYL TRINITRATE [Concomitant]
     Active Substance: NITROGLYCERIN
  15. ACTIVASE [Suspect]
     Active Substance: ALTEPLASE
     Indication: ACUTE MYOCARDIAL INFARCTION
     Dosage: 50 CC/ HR
     Route: 042
  16. LASIX [Concomitant]
     Active Substance: FUROSEMIDE
     Route: 042
  17. NITROGLYCERIN. [Concomitant]
     Active Substance: NITROGLYCERIN
     Route: 042
  18. DEMEROL [Concomitant]
     Active Substance: MEPERIDINE HYDROCHLORIDE
     Route: 042

REACTIONS (9)
  - Sinus tachycardia [Unknown]
  - Pain [Recovered/Resolved]
  - Cardiac arrest [Fatal]
  - Pulmonary oedema [Unknown]
  - Cough [Unknown]
  - Cardiac failure [Unknown]
  - Electrocardiogram ST segment elevation [Unknown]
  - Electrocardiogram Q waves [Unknown]
  - Ventricular tachycardia [Unknown]
